APPROVED DRUG PRODUCT: SULFACETAMIDE SODIUM
Active Ingredient: SULFACETAMIDE SODIUM
Strength: 10%
Dosage Form/Route: LOTION;TOPICAL
Application: A077015 | Product #001 | TE Code: AB
Applicant: FOUGERA PHARMACEUTICALS INC
Approved: Nov 17, 2006 | RLD: No | RS: No | Type: RX